FAERS Safety Report 4917472-6 (Version None)
Quarter: 2006Q1

REPORT INFORMATION
  Report Type: 
  Country: None (occurrence: None)
  Receive Date: 20060221
  Receipt Date: 20060208
  Transmission Date: 20060701
  Serious: Yes (Hospitalization)
  Sender: FDA-Public Use
  Company Number: US-AMGEN-US168189

PATIENT
  Sex: Male

DRUGS (6)
  1. PANITUMUMAB [Suspect]
     Indication: COLORECTAL CANCER
     Route: 042
     Dates: start: 20051206
  2. NEULASTA - PREFILLED SYRINGE [Suspect]
     Route: 065
     Dates: start: 20060207
  3. AVASTIN [Suspect]
     Route: 042
  4. FLUOROURACIL [Concomitant]
     Route: 042
  5. FOLINIC ACID [Concomitant]
     Route: 042
  6. OXALIPLATIN [Concomitant]
     Route: 042

REACTIONS (1)
  - PULMONARY EMBOLISM [None]
